FAERS Safety Report 11733783 (Version 1)
Quarter: 2015Q4

REPORT INFORMATION
  Report Type: Spontaneous
  Country: US (occurrence: US)
  Receive Date: 20151110
  Receipt Date: 20151110
  Transmission Date: 20160304
  Serious: No
  Sender: FDA-Public Use
  Company Number: US-ELI_LILLY_AND_COMPANY-US201112005547

PATIENT
  Sex: Female

DRUGS (5)
  1. FORTEO [Suspect]
     Active Substance: TERIPARATIDE
     Indication: OSTEOPOROSIS
     Dosage: 20 UG, QD
     Dates: start: 20111201
  2. TYLENOL [Concomitant]
     Active Substance: ACETAMINOPHEN
  3. ANALGESICS [Concomitant]
     Active Substance: UNSPECIFIED INGREDIENT
     Indication: PAIN
  4. FORTEO [Suspect]
     Active Substance: TERIPARATIDE
     Dosage: 20 UG, QD
  5. FORTEO [Suspect]
     Active Substance: TERIPARATIDE
     Dosage: 20 UG, QD

REACTIONS (10)
  - Dizziness [Unknown]
  - Bone pain [Unknown]
  - Feeling abnormal [Recovered/Resolved]
  - Injection site reaction [Unknown]
  - Arthritis [Not Recovered/Not Resolved]
  - Pain [Unknown]
  - Muscle spasms [Unknown]
  - Gait disturbance [Unknown]
  - Arthralgia [Unknown]
  - Injection site bruising [Recovered/Resolved]
